FAERS Safety Report 18028531 (Version 4)
Quarter: 2020Q3

REPORT INFORMATION
  Report Type: Report from Study
  Country: CA (occurrence: CA)
  Receive Date: 20200715
  Receipt Date: 20200908
  Transmission Date: 20201103
  Serious: Yes (Death)
  Sender: FDA-Public Use
  Company Number: CA-HLS-202000864

PATIENT
  Age: 68 Year
  Sex: Male
  Weight: 50 kg

DRUGS (17)
  1. SERTRALINE [Concomitant]
     Active Substance: SERTRALINE HYDROCHLORIDE
     Dosage: 50MG 1 CAPSULE ONCE A DAY.
     Route: 065
     Dates: start: 20190315, end: 20200215
  2. CALVULIN [Concomitant]
     Dosage: 500?125 MG, 1 TABLET 3 TIMES A DAY
     Route: 048
     Dates: start: 20200416, end: 20200420
  3. CLONAZEPAM. [Concomitant]
     Active Substance: CLONAZEPAM
     Dosage: 0.5 MG, 1 TABLET TWICE A DAY
     Route: 048
     Dates: start: 20160221, end: 20200215
  4. CLOZARIL [Suspect]
     Active Substance: CLOZAPINE
     Indication: SCHIZOPHRENIA
     Dosage: 100MG TID
     Route: 048
     Dates: start: 19980707, end: 20200401
  5. CALCIUM CARBONATE. [Concomitant]
     Active Substance: CALCIUM CARBONATE
     Dosage: 500MG, 1 TABLET ONCE A DAY.
     Route: 048
     Dates: start: 20181221, end: 20200420
  6. PREDNISONE. [Concomitant]
     Active Substance: PREDNISONE
     Dosage: 50MG ORALLY ONCE A DAY
     Route: 048
     Dates: start: 20200420
  7. QUETIAPINE FUMARATE. [Concomitant]
     Active Substance: QUETIAPINE FUMARATE
     Dosage: 1 TAB 3 TIMES PER DAY
     Route: 048
     Dates: start: 20180220, end: 20200215
  8. RABEPRAZOLE [Concomitant]
     Active Substance: RABEPRAZOLE
     Dosage: 20MG, 1 TABLET ONCE DAILY
     Route: 048
     Dates: start: 20190115, end: 20200215
  9. VITAMIN B12 [Concomitant]
     Active Substance: CYANOCOBALAMIN
     Dosage: 1 TABLET ONCE A DAY
     Route: 048
     Dates: start: 20190611, end: 20200215
  10. CEFTRIAXONE. [Concomitant]
     Active Substance: CEFTRIAXONE
     Indication: PNEUMONIA
     Dosage: EVERY HALF HOUR
     Route: 030
     Dates: start: 20200419, end: 20200424
  11. DILAUDID SOLUTION [Concomitant]
     Route: 058
     Dates: start: 20200419, end: 20200502
  12. LEVIDOPA?CARBIDOPA [Concomitant]
     Dosage: 1 TAB 3X A DAY
     Route: 048
     Dates: start: 20180220, end: 20200215
  13. ATROPINE SULFATE. [Concomitant]
     Active Substance: ATROPINE SULFATE
     Dosage: 3 DROPS, SUBLINGUAL PRN
     Route: 060
     Dates: start: 20200419, end: 20200502
  14. PROPANOLOL HCL [Concomitant]
     Active Substance: PROPRANOLOL HYDROCHLORIDE
     Dosage: 1 TABLET TWICE A DAY.
     Route: 048
     Dates: start: 20190211, end: 20200215
  15. SALBUTAMOL HFA [Concomitant]
     Active Substance: ALBUTEROL
     Dosage: 2 PUFFS ORALLY 4 TIMES A DAY.
     Route: 065
     Dates: start: 20190502, end: 20200205
  16. CLOZARIL [Suspect]
     Active Substance: CLOZAPINE
     Indication: SCHIZOPHRENIA
     Dosage: 2 TABLETS AT BEDTIME
     Route: 048
     Dates: start: 20180220, end: 20200215
  17. SIMVASTATIN. [Concomitant]
     Active Substance: SIMVASTATIN
     Dosage: 10MG, 1 TAB, ONCE A DAY
     Route: 048
     Dates: start: 20180215, end: 20200221

REACTIONS (1)
  - Pneumonia [Fatal]

NARRATIVE: CASE EVENT DATE: 20200420
